FAERS Safety Report 11534187 (Version 1)
Quarter: 2015Q3

REPORT INFORMATION
  Report Type: Spontaneous
  Country: US (occurrence: None)
  Receive Date: 20150921
  Receipt Date: 20150921
  Transmission Date: 20151125
  Serious: Yes (Death)
  Sender: FDA-Public Use
  Company Number: None

PATIENT
  Age: 68 Year
  Sex: Female

DRUGS (15)
  1. NIVOLUMAB [Suspect]
     Active Substance: NIVOLUMAB
     Indication: LUNG ADENOCARCINOMA STAGE IV
     Dosage: QO2W
     Route: 042
     Dates: start: 20150805, end: 20150819
  2. CELEXA [Concomitant]
     Active Substance: CITALOPRAM HYDROBROMIDE
  3. PROMETHAZINE [Concomitant]
     Active Substance: PROMETHAZINE\PROMETHAZINE HYDROCHLORIDE
  4. TOPAMAX [Concomitant]
     Active Substance: TOPIRAMATE
  5. ATIVAN [Concomitant]
     Active Substance: LORAZEPAM
  6. MS CONTIN [Concomitant]
     Active Substance: MORPHINE SULFATE
  7. OXYCODONE [Concomitant]
     Active Substance: OXYCODONE
  8. SYMVASTATIN [Concomitant]
  9. SENNA [Concomitant]
     Active Substance: SENNA LEAF\SENNOSIDES\SENNOSIDES A AND B
  10. COLACE [Concomitant]
     Active Substance: DOCUSATE SODIUM
  11. PANTOPRAZOLE [Concomitant]
     Active Substance: PANTOPRAZOLE SODIUM
  12. LEVAQUIN [Concomitant]
     Active Substance: LEVOFLOXACIN
  13. ARIXTRA [Concomitant]
     Active Substance: FONDAPARINUX SODIUM
  14. TYLENOL [Concomitant]
     Active Substance: ACETAMINOPHEN
  15. VITAMIN D3 [Concomitant]
     Active Substance: CHOLECALCIFEROL

REACTIONS (6)
  - Atrioventricular block complete [None]
  - Hepatotoxicity [None]
  - Hospice care [None]
  - Conduction disorder [None]
  - Cardio-respiratory arrest [None]
  - Myocarditis [None]

NARRATIVE: CASE EVENT DATE: 20150906
